FAERS Safety Report 13531457 (Version 1)
Quarter: 2017Q2

REPORT INFORMATION
  Report Type: Spontaneous
  Country: US (occurrence: US)
  Receive Date: 20170510
  Receipt Date: 20170510
  Transmission Date: 20170830
  Serious: No
  Sender: FDA-Public Use
  Company Number: US-PFIZER INC-2017199538

PATIENT
  Age: 52 Year
  Sex: Male

DRUGS (1)
  1. SUTENT [Suspect]
     Active Substance: SUNITINIB MALATE
     Indication: RENAL CANCER
     Dosage: UNK

REACTIONS (6)
  - Dry eye [Unknown]
  - Blister [Unknown]
  - Limb discomfort [Unknown]
  - Neoplasm progression [Unknown]
  - Pain of skin [Unknown]
  - Dry mouth [Unknown]
